FAERS Safety Report 4792469-8 (Version None)
Quarter: 2005Q4

REPORT INFORMATION
  Report Type: 
  Country: None (occurrence: None)
  Receive Date: 20051010
  Receipt Date: 20051003
  Transmission Date: 20060501
  Serious: Yes (Death)
  Sender: FDA-Public Use
  Company Number: DKLU1017078

PATIENT
  Age: 29 Year
  Sex: Male

DRUGS (4)
  1. ZYBAN [Suspect]
     Indication: SMOKING CESSATION THERAPY
     Dosage: 150MG PER DAY
     Dates: start: 20040421
  2. CIPRAMIL [Suspect]
     Indication: STRESS
     Dosage: 20MG PER DAY
     Route: 065
     Dates: start: 20040101
  3. CHLORPHENIRAMINE MALEATE [Concomitant]
     Route: 065
  4. ANTI-HISTAMINE TAB [Concomitant]

REACTIONS (7)
  - ACUTE PULMONARY OEDEMA [None]
  - DERMATITIS ALLERGIC [None]
  - DIFFICULTY IN WALKING [None]
  - FEELING ABNORMAL [None]
  - HYPERSENSITIVITY [None]
  - PAIN [None]
  - PYREXIA [None]
